FAERS Safety Report 5814775-8 (Version None)
Quarter: 2008Q3

REPORT INFORMATION
  Report Type: 
  Country: None (occurrence: None)
  Receive Date: 20080718
  Receipt Date: 20080711
  Transmission Date: 20090109
  Serious: Yes (Other)
  Sender: FDA-Public Use
  Company Number: GB-ROCHE-575547

PATIENT
  Sex: Female
  Weight: 87 kg

DRUGS (9)
  1. ORLISTAT [Suspect]
     Indication: OBESITY
     Route: 048
     Dates: start: 20080220, end: 20080704
  2. METFORMIN HCL [Concomitant]
     Route: 048
  3. ALBUTEROL [Concomitant]
     Indication: ASTHMA
     Route: 065
  4. SIMVASTATIN [Concomitant]
     Route: 048
  5. SIMBICORT [Concomitant]
     Indication: ASTHMA
     Dosage: ENTERED AS SYMVICORT.
     Route: 065
  6. ASPIRIN [Concomitant]
     Route: 048
  7. DICLOFENAC [Concomitant]
     Indication: PAIN
     Route: 048
  8. PROZAC [Concomitant]
     Indication: DEPRESSION
     Route: 048
  9. LEVOTHYROXINE SODIUM [Concomitant]
     Indication: HYPOTHYROIDISM
     Dosage: ENTERED AS LEYTHYROXINE WITH AN INDICATION OF THYROID.
     Route: 048

REACTIONS (3)
  - BREAST MASS [None]
  - DRY SKIN [None]
  - RASH [None]
